FAERS Safety Report 5807929-8 (Version None)
Quarter: 2008Q3

REPORT INFORMATION
  Report Type: 
  Country: None (occurrence: None)
  Receive Date: 20080711
  Receipt Date: 20080702
  Transmission Date: 20090109
  Serious: Yes (Hospitalization, Other)
  Sender: FDA-Public Use
  Company Number: JP-PFIZER INC-2008052341

PATIENT
  Sex: Female
  Weight: 45 kg

DRUGS (7)
  1. ZOLOFT [Suspect]
     Route: 048
  2. GASMOTIN [Concomitant]
     Route: 048
  3. DIAZEPAM [Concomitant]
     Route: 048
  4. TERNELIN [Concomitant]
     Route: 048
  5. LOXONIN [Concomitant]
     Route: 048
  6. SELBEX [Concomitant]
     Route: 048
  7. FOSAMAX [Concomitant]
     Route: 048

REACTIONS (2)
  - INTESTINAL ISCHAEMIA [None]
  - VASCULITIS [None]
